FAERS Safety Report 7341970-1 (Version None)
Quarter: 2011Q1

REPORT INFORMATION
  Report Type: 
  Country: None (occurrence: None)
  Receive Date: 20110309
  Receipt Date: 20110225
  Transmission Date: 20110831
  Serious: Yes (Other)
  Sender: FDA-Public Use
  Company Number: JP-PFIZER INC-2011050171

PATIENT
  Age: 83 Year
  Sex: Female

DRUGS (7)
  1. LIPITOR [Concomitant]
     Indication: HYPERLIPIDAEMIA
     Dosage: 10 MG, 1X/DAY
     Route: 048
  2. SUNRYTHM [Concomitant]
     Indication: ATRIAL FIBRILLATION
     Dosage: 100 MG, 1X/DAY
     Route: 048
  3. MERISLON [Concomitant]
     Indication: DIZZINESS
     Dosage: 18 MG, 1X/DAY
     Route: 048
  4. AMLODIPINE [Suspect]
     Indication: HYPERTENSION
     Dosage: 5 MG, UNK
     Route: 048
     Dates: end: 20070908
  5. BROTIZOLAM [Concomitant]
     Indication: ANXIETY DISORDER
     Dosage: 0.25 MG, 1X/DAY
     Route: 048
  6. ASPIRIN [Concomitant]
     Indication: ATRIAL FIBRILLATION
     Dosage: 100 MG, 1X/DAY
     Route: 048
  7. ALINAMIN F [Concomitant]
     Indication: ANXIETY DISORDER
     Dosage: 75 MG, UNK
     Route: 048

REACTIONS (1)
  - PARKINSONISM [None]
